FAERS Safety Report 8071346-3 (Version None)
Quarter: 2012Q1

REPORT INFORMATION
  Report Type: 
  Country: None (occurrence: None)
  Receive Date: 20120125
  Receipt Date: 20120110
  Transmission Date: 20120608
  Serious: Yes (Life-Threatening, Hospitalization)
  Sender: FDA-Public Use
  Company Number: CZ-BIOGENIDEC-2011BI046871

PATIENT
  Age: 46 Year
  Sex: Female

DRUGS (2)
  1. DEPAKENE [Concomitant]
     Indication: EPILEPSY
  2. TYSABRI [Suspect]
     Indication: PRODUCT USED FOR UNKNOWN INDICATION
     Route: 042
     Dates: start: 20090506, end: 20111116

REACTIONS (2)
  - PROGRESSIVE MULTIFOCAL LEUKOENCEPHALOPATHY [None]
  - JC VIRUS TEST POSITIVE [None]
